FAERS Safety Report 16608183 (Version 2)
Quarter: 2019Q4

REPORT INFORMATION
  Report Type: Spontaneous
  Country: US (occurrence: US)
  Receive Date: 20190722
  Receipt Date: 20191007
  Transmission Date: 20200122
  Serious: No
  Sender: FDA-Public Use
  Company Number: US-NXDC-GLE-0027-2019

PATIENT
  Age: 42 Year
  Sex: Female
  Weight: 74.4 kg

DRUGS (6)
  1. BACTRIM DS [Concomitant]
     Active Substance: SULFAMETHOXAZOLE\TRIMETHOPRIM
     Dosage: 3 TIMES A WEEK
  2. GLEOLAN [Suspect]
     Active Substance: AMINOLEVULINIC ACID HYDROCHLORIDE
     Indication: ASTROCYTOMA
     Dates: start: 20190129, end: 20190129
  3. BRIVARACETAM [Concomitant]
     Active Substance: BRIVARACETAM
     Dosage: 100MG BID
  4. VIMPAT [Concomitant]
     Active Substance: LACOSAMIDE
     Dosage: 200 BID
  5. DECADRON [Concomitant]
     Active Substance: DEXAMETHASONE
     Dosage: 4MG Q6H
  6. ONFI [Concomitant]
     Active Substance: CLOBAZAM
     Dosage: 20MG BID

REACTIONS (1)
  - Drug ineffective [Unknown]

NARRATIVE: CASE EVENT DATE: 20190129
